FAERS Safety Report 9857988 (Version 3)
Quarter: 2014Q1

REPORT INFORMATION
  Report Type: Report from Study
  Country: US (occurrence: US)
  Receive Date: 20140131
  Receipt Date: 20140211
  Transmission Date: 20141002
  Serious: Yes (Death, Hospitalization)
  Sender: FDA-Public Use
  Company Number: US-ROCHE-1342333

PATIENT
  Age: 64 Year
  Sex: Male
  Weight: 69.46 kg

DRUGS (3)
  1. BEVACIZUMAB [Suspect]
     Indication: GASTRIC CANCER
     Dosage: 15 MG/KG
     Route: 042
     Dates: start: 20120614, end: 20131231
  2. CAPECITABINE [Suspect]
     Indication: GASTRIC CANCER
     Dosage: 1700 MG/M2
     Route: 048
  3. OXALIPLATIN [Suspect]
     Indication: GASTRIC CANCER
     Dosage: 130 MG/M2
     Route: 042
     Dates: start: 20120614, end: 20131231

REACTIONS (7)
  - Disease progression [Fatal]
  - Pyrexia [Fatal]
  - Tachycardia [Fatal]
  - Hypotension [Fatal]
  - Dehydration [Fatal]
  - Mental status changes [Fatal]
  - Sepsis [Fatal]
